FAERS Safety Report 8901147 (Version 2)
Quarter: 2012Q4

REPORT INFORMATION
  Report Type: 
  Country: SG (occurrence: SG)
  Receive Date: 20121109
  Receipt Date: 20121113
  Transmission Date: 20130627
  Serious: Yes (Death)
  Sender: FDA-Public Use
  Company Number: SG-JNJFOC-20121014563

PATIENT

DRUGS (44)
  1. DOXORUBICIN [Suspect]
     Indication: ACUTE LYMPHOCYTIC LEUKAEMIA
     Dosage: reinduction phase  protocol III regimen (for SR and IR sub-group patients) on days 1 and 8
     Route: 042
  2. DOXORUBICIN [Suspect]
     Indication: ACUTE LYMPHOCYTIC LEUKAEMIA
     Dosage: reinduction phase  protocol II regimen (for HR sub-group patients) on days 1, 8 and 15
     Route: 042
  3. DOXORUBICIN [Suspect]
     Indication: ACUTE LYMPHOCYTIC LEUKAEMIA
     Dosage: reinduction phase  protocol III regimen (for SR and IR sub-group patients) on days 1 and 8
     Route: 042
  4. DOXORUBICIN [Suspect]
     Indication: ACUTE LYMPHOCYTIC LEUKAEMIA
     Dosage: reinduction phase  protocol II regimen (for HR sub-group patients) on days 1, 8 and 15
     Route: 042
  5. PREDNISOLONE [Suspect]
     Indication: ACUTE LYMPHOCYTIC LEUKAEMIA
     Dosage: induction phase of treatment, thrice a day and given on day 1-7
     Route: 048
  6. METHOTREXATE [Suspect]
     Indication: ACUTE LYMPHOCYTIC LEUKAEMIA
     Dosage: induction phase of treatment, in protocol 1 phase 1a regimen (HR sub-group) on days 8, 15, 22
     Route: 037
  7. METHOTREXATE [Suspect]
     Indication: ACUTE LYMPHOCYTIC LEUKAEMIA
     Dosage: induction phase of treatment, in protocol 1,phase 1b regimen (for all risk groups) on days 45 and 59
     Route: 037
  8. METHOTREXATE [Suspect]
     Indication: ACUTE LYMPHOCYTIC LEUKAEMIA
     Dosage: Consolidation phase, in protocol M2g regimen (SR) on dys 8, 22, 36, 50
     Route: 037
  9. METHOTREXATE [Suspect]
     Indication: ACUTE LYMPHOCYTIC LEUKAEMIA
     Dosage: Consolidation phase, Protocol M5g (IR and HR) on days 8, 22, 36 and 50
     Route: 037
  10. METHOTREXATE [Suspect]
     Indication: ACUTE LYMPHOCYTIC LEUKAEMIA
     Dosage: for reinduction phase; protocol III (SR and IR) on days 1 and 24
     Route: 037
  11. METHOTREXATE [Suspect]
     Indication: ACUTE LYMPHOCYTIC LEUKAEMIA
     Dosage: on reinduction phase Protocol II (HR only) on days 1 and 31
     Route: 037
  12. METHOTREXATE [Suspect]
     Indication: ACUTE LYMPHOCYTIC LEUKAEMIA
     Dosage: induction phase of treatment, in protocol 1 phase 1^a regimen (SR and IR) on days 8, 15, 22
     Route: 037
  13. METHOTREXATE [Suspect]
     Indication: ACUTE LYMPHOCYTIC LEUKAEMIA
     Dosage: induction phase of treatment, on day 1
     Route: 037
  14. METHOTREXATE [Suspect]
     Indication: ACUTE LYMPHOCYTIC LEUKAEMIA
     Dosage: Consolidation phase, Protocol M5g (IR and HR); 24 hour infusion; 5 g/m2 on days 8, 22, 36, 50
     Route: 037
  15. METHOTREXATE [Suspect]
     Indication: ACUTE LYMPHOCYTIC LEUKAEMIA
     Dosage: Consolidation phase, protocol M2g regimen (SR patients) on days 8,22,36 and 50;24 hr infusion;2 g/m2
     Route: 037
  16. METHOTREXATE [Suspect]
     Indication: ACUTE LYMPHOCYTIC LEUKAEMIA
     Dosage: Consolidation phase, protocol M2g regimen (SR patients) on days 8,22,36 and 50;24 hr infusion;2 g/m2
     Route: 065
  17. METHOTREXATE [Suspect]
     Indication: ACUTE LYMPHOCYTIC LEUKAEMIA
     Dosage: Consolidation phase, Protocol M5g (IR and HR); 24 hour infusion; 5 g/m2 on days 8, 22, 36, 50
     Route: 065
  18. DEXAMETHASONE [Suspect]
     Indication: ACUTE LYMPHOCYTIC LEUKAEMIA
     Dosage: per day; thrice daily; Reinduction phase, protocol III regimen (SR and IR only); on days 1-14
     Route: 048
  19. DEXAMETHASONE [Suspect]
     Indication: ACUTE LYMPHOCYTIC LEUKAEMIA
     Dosage: per day twice daily; induction phase, protocol I phase Ia regimen (HR patients) on days 8 to 35
     Route: 048
  20. DEXAMETHASONE [Suspect]
     Indication: ACUTE LYMPHOCYTIC LEUKAEMIA
     Dosage: per day; thrice daily; Reinduction phase, protocol II regimen (HR patients) on days 1 to 21
     Route: 048
  21. DEXAMETHASONE [Suspect]
     Indication: ACUTE LYMPHOCYTIC LEUKAEMIA
     Dosage: per day; twice daily; induction phase, protocol I phase I^a regimen (SR and IR only) on days 8-35
     Route: 048
  22. VINCRISTINE [Suspect]
     Indication: ACUTE LYMPHOCYTIC LEUKAEMIA
     Dosage: 1.5mg/m2; Max dose 2mg/m2; Reinduction phase, protocol II regimen (HR pts) on days 1, 8, 15
     Route: 042
  23. VINCRISTINE [Suspect]
     Indication: ACUTE LYMPHOCYTIC LEUKAEMIA
     Dosage: 1.5mg/m2; Max dose 2mg/m2; Reinduction phase, protocol III regimen (SR and IR) on days 1 and 8
     Route: 042
  24. VINCRISTINE [Suspect]
     Indication: ACUTE LYMPHOCYTIC LEUKAEMIA
     Dosage: 1.5mg/m2; Max dose 2mg/m2; induction phase, protocol I phase Ia regimen (HR pts) on day 8,15,22,29
     Route: 042
  25. VINCRISTINE [Suspect]
     Indication: ACUTE LYMPHOCYTIC LEUKAEMIA
     Dosage: 1.5 mg/m2;max dose of 2mg/m2;induction phase,protocol I phase I^a regimen (SR and IR) day 8,15,22,29
     Route: 042
  26. ASPARAGINASE [Suspect]
     Indication: ACUTE LYMPHOCYTIC LEUKAEMIA
     Dosage: 10,000 U/m2 per day Re-induction phase, protocol III regimen (SR and IR) on days 3, 6, 9 and 12
     Route: 030
  27. ASPARAGINASE [Suspect]
     Indication: ACUTE LYMPHOCYTIC LEUKAEMIA
     Dosage: 10,000 U/m2 per day Re-induction phase, protocol II regimen (HR pts) on days 3,6,9,12,15,18
     Route: 030
  28. ASPARAGINASE [Suspect]
     Indication: ACUTE LYMPHOCYTIC LEUKAEMIA
     Dosage: 7500 U/m2/ dose induction phase, protocol I phase Ia regimen (HR pts) on days 8,11,15,18,22,25,29,33
     Route: 030
  29. ASPARAGINASE [Suspect]
     Indication: ACUTE LYMPHOCYTIC LEUKAEMIA
     Dosage: 7500 U/m2 induction phase, protocol I phase I^a regimen (SR and IR) on days 8,11,15,18,22,25,29,33.
     Route: 030
  30. DAUNORUBICIN [Suspect]
     Indication: ACUTE LYMPHOCYTIC LEUKAEMIA
     Dosage: induction phase, Protocol 1 phase Ia (HR pts) on days 8, 15, 22, 29
     Route: 042
  31. CYCLOPHOSPHAMIDE [Suspect]
     Indication: ACUTE LYMPHOCYTIC LEUKAEMIA
     Dosage: induction phase, Protocol 1 phase Ib all patients on days 36 and 64
     Route: 042
  32. CYCLOPHOSPHAMIDE [Suspect]
     Indication: ACUTE LYMPHOCYTIC LEUKAEMIA
     Dosage: Re-induction phase, Protocol II regimen (HR pts) on day 22
     Route: 042
  33. CYCLOPHOSPHAMIDE [Suspect]
     Indication: ACUTE LYMPHOCYTIC LEUKAEMIA
     Dosage: Re-induction phase, Protocol III regimen (SR and IR) on day 15
     Route: 042
  34. CYTARABINE [Suspect]
     Indication: ACUTE LYMPHOCYTIC LEUKAEMIA
     Dosage: Re-induction phase, Protocol II regimen (HR pts) on days 24-27, 31-34
     Route: 042
  35. CYTARABINE [Suspect]
     Indication: ACUTE LYMPHOCYTIC LEUKAEMIA
     Dosage: Re-induction phase, Protocol III regimen (SR and IR) on days 17-20, 24-27
     Route: 042
  36. CYTARABINE [Suspect]
     Indication: ACUTE LYMPHOCYTIC LEUKAEMIA
     Dosage: induction phase, Protocol 1 phase Ib (all pts) on days 38-41, 45-48, 52-55, 59-62
     Route: 042
  37. CYTARABINE [Suspect]
     Indication: ACUTE LYMPHOCYTIC LEUKAEMIA
     Dosage: Re-induction phase, Protocol III regimen (SR and IR) on 17-20, 24-27
     Route: 058
  38. CYTARABINE [Suspect]
     Indication: ACUTE LYMPHOCYTIC LEUKAEMIA
     Dosage: induction phase, Protocol 1 phase Ib (all pts) on days 38-41, 45-48, 52-55, 59-62
     Route: 058
  39. CYTARABINE [Suspect]
     Indication: ACUTE LYMPHOCYTIC LEUKAEMIA
     Dosage: Re-induction phase, Protocol II regimen (HR pts) on days 24-27, 31-34
     Route: 058
  40. MERCAPTOPURINE [Suspect]
     Indication: ACUTE LYMPHOCYTIC LEUKAEMIA
     Dosage: Consolidation phase, Protocol M5g  regimen (IR and HR) on days 1-56
     Route: 048
  41. MERCAPTOPURINE [Suspect]
     Indication: ACUTE LYMPHOCYTIC LEUKAEMIA
     Dosage: Consolidation phase, Protocol M2g  regimen (SR pts) on days 1-56
     Route: 048
  42. MERCAPTOPURINE [Suspect]
     Indication: ACUTE LYMPHOCYTIC LEUKAEMIA
     Dosage: induction phase, Protocol 1 phase Ib (all pts) on days 36-64
     Route: 048
  43. THIOGUANINE [Suspect]
     Indication: ACUTE LYMPHOCYTIC LEUKAEMIA
     Dosage: Re-induction phase, Protocol III regimen (SR and IR) on days 15-28
     Route: 048
  44. THIOGUANINE [Suspect]
     Indication: ACUTE LYMPHOCYTIC LEUKAEMIA
     Dosage: Re-induction phase, Protocol II regimen (HR pts) on days 22-36
     Route: 048

REACTIONS (1)
  - Pneumothorax [Fatal]
